FAERS Safety Report 9725213 (Version 2)
Quarter: 2014Q1

REPORT INFORMATION
  Report Type: Spontaneous
  Country: CA (occurrence: CA)
  Receive Date: 20131203
  Receipt Date: 20140101
  Transmission Date: 20141002
  Serious: Yes (Other)
  Sender: FDA-Public Use
  Company Number: CA-ROCHE-1308225

PATIENT
  Age: 71 Year
  Sex: Female
  Weight: 61 kg

DRUGS (7)
  1. AVASTIN [Suspect]
     Indication: COLORECTAL CANCER METASTATIC
     Route: 042
     Dates: start: 201111, end: 20130903
  2. 5-FU [Concomitant]
     Indication: COLORECTAL CANCER METASTATIC
     Route: 065
     Dates: start: 201111
  3. 5-FU [Concomitant]
     Route: 042
     Dates: start: 20130319
  4. LEUCOVORIN [Concomitant]
     Indication: COLORECTAL CANCER METASTATIC
     Route: 065
     Dates: start: 201111
  5. LEUCOVORIN [Concomitant]
     Route: 042
     Dates: start: 20130319
  6. IRINOTECAN [Concomitant]
     Indication: COLORECTAL CANCER METASTATIC
     Route: 065
     Dates: start: 201111
  7. IRINOTECAN [Concomitant]
     Route: 042
     Dates: start: 20130319

REACTIONS (7)
  - Necrotising fasciitis [Recovering/Resolving]
  - Periorbital infection [Recovering/Resolving]
  - Cellulitis [Recovering/Resolving]
  - Neuropathy peripheral [Unknown]
  - Pulmonary embolism [Unknown]
  - Glossodynia [Unknown]
  - Fatigue [Unknown]
